FAERS Safety Report 21529619 (Version 2)
Quarter: 2022Q4

REPORT INFORMATION
  Report Type: Spontaneous
  Country: US (occurrence: US)
  Receive Date: 20221031
  Receipt Date: 20221223
  Transmission Date: 20230113
  Serious: No
  Sender: FDA-Public Use
  Company Number: US-BAYER-2022A149674

PATIENT
  Age: 78 Year
  Sex: Male

DRUGS (2)
  1. KERENDIA [Suspect]
     Active Substance: FINERENONE
     Indication: Nephropathy
     Dosage: 10 UNK
     Dates: start: 202202
  2. KERENDIA [Suspect]
     Active Substance: FINERENONE
     Indication: Nephropathy

REACTIONS (4)
  - Hypotension [None]
  - Muscle spasms [None]
  - Off label use [None]
  - Drug ineffective for unapproved indication [None]
